FAERS Safety Report 17570643 (Version 1)
Quarter: 2020Q1

REPORT INFORMATION
  Report Type: Spontaneous
  Country: FR (occurrence: FR)
  Receive Date: 20200323
  Receipt Date: 20200323
  Transmission Date: 20200409
  Serious: Yes (Other)
  Sender: FDA-Public Use
  Company Number: FR-TEVA-2020-FR-1206681

PATIENT
  Age: 67 Year
  Sex: Female
  Weight: 53 kg

DRUGS (3)
  1. OXALIPLATINE TEVA [Suspect]
     Active Substance: OXALIPLATIN
     Indication: RECTAL ADENOCARCINOMA
     Dosage: 85 MG/M?
     Route: 042
     Dates: start: 20200204, end: 20200218
  2. FLUOROURACILE TEVA [Concomitant]
     Active Substance: FLUOROURACIL
     Route: 042
     Dates: start: 20200204
  3. ACIDE FOLINIQUE TEVA 25 MG/ML, SOLUTION INJECTABLE [Concomitant]
     Route: 042
     Dates: start: 20200204

REACTIONS (4)
  - Paraesthesia [Recovered/Resolved]
  - Respiratory disorder [Recovered/Resolved]
  - Tremor [Recovered/Resolved]
  - Dysstasia [Recovered/Resolved]

NARRATIVE: CASE EVENT DATE: 20200204
